FAERS Safety Report 21836876 (Version 1)
Quarter: 2023Q1

REPORT INFORMATION
  Report Type: Spontaneous
  Country: US (occurrence: None)
  Receive Date: 20230106
  Receipt Date: 20230106
  Transmission Date: 20230418
  Serious: Yes (Death, Life-Threatening, Other)
  Sender: FDA-Public Use
  Company Number: None

PATIENT
  Age: 68 Year
  Sex: Male
  Weight: 100.3 kg

DRUGS (22)
  1. YESCARTA [Suspect]
     Active Substance: AXICABTAGENE CILOLEUCEL
     Indication: Diffuse large B-cell lymphoma
     Dosage: OTHER FREQUENCY : ONE TIME INFUSION;?
     Route: 040
     Dates: start: 20221201, end: 20221201
  2. Methylprednisolone 500 mg IV x 2 a.m. + p.m. [Concomitant]
     Dates: start: 20221206, end: 20221206
  3. Methylprednisolone 500 mg q12h IV Q12h [Concomitant]
     Dates: start: 20221206, end: 20221211
  4. Methylprednisolone 250 q12h IV [Concomitant]
     Dates: start: 20221211, end: 20221212
  5. Methylprednisolone 1 Gram Q24h x 2 [Concomitant]
     Dates: start: 20221212, end: 20221213
  6. Methylprednisolone 500 mg q12h IV p.m. [Concomitant]
     Dates: start: 20221212, end: 20221223
  7. Anakinra 100 mg SQ once a day [Concomitant]
     Dates: start: 20221212, end: 20221219
  8. Leviracetam 500 mg BID [Concomitant]
     Dates: start: 20221204, end: 20221206
  9. Levetiracetam 1000 mg BID [Concomitant]
     Dates: start: 20221206, end: 20221208
  10. Levetiracetam 1000 mg BID [Concomitant]
     Dates: start: 20221212, end: 20221222
  11. LEVETIRACETAM 750 mg Q12h [Concomitant]
     Dates: start: 20221212, end: 20221223
  12. Cefepime 2 Grams IV Q8h [Concomitant]
     Dates: start: 20221204, end: 20221209
  13. Vancomycin 1000 mg IV Q12h [Concomitant]
     Dates: start: 20221205, end: 20221206
  14. VANCOMYCIN [Concomitant]
     Active Substance: VANCOMYCIN
     Dates: start: 20221212, end: 20221223
  15. METRonidazole TAB  500MG PO TID [Concomitant]
     Dates: start: 20221206, end: 20221211
  16. MICAFUNGIN 100 mg IV Daily [Concomitant]
     Dates: start: 20221207, end: 20221223
  17. PIPERACILLIN/TAZOBACTAM IV 4.5GM Q6h [Concomitant]
     Dates: start: 20221209, end: 20221221
  18. MEROPENEM 500 MG IV Q12h [Concomitant]
     Dates: start: 20221212
  19. TOCILIZUMAB 700 MG Infusion [Concomitant]
     Dates: start: 20221204, end: 20221204
  20. TOCILIZUMAB 700 MG Infusion [Concomitant]
     Dates: start: 20221206, end: 20221206
  21. ceftriaxone 2Gm Q24h [Concomitant]
     Dates: start: 20221209, end: 20221211
  22. Rifaximin 550 mg BID [Concomitant]
     Dates: start: 20221212, end: 20221218

REACTIONS (16)
  - Immune effector cell-associated neurotoxicity syndrome [None]
  - Cytokine release syndrome [None]
  - Hyperbilirubinaemia [None]
  - Ascites [None]
  - Thrombocytopenia [None]
  - Agitation [None]
  - Loss of consciousness [None]
  - Acute respiratory failure [None]
  - Cytopenia [None]
  - Shock [None]
  - Blood fibrinogen decreased [None]
  - International normalised ratio increased [None]
  - Deep vein thrombosis [None]
  - Multiple organ dysfunction syndrome [None]
  - Cardiac arrest [None]
  - Cardio-respiratory arrest [None]

NARRATIVE: CASE EVENT DATE: 20221212
